FAERS Safety Report 7522338-1 (Version None)
Quarter: 2011Q2

REPORT INFORMATION
  Report Type: 
  Country: None (occurrence: None)
  Receive Date: 20110603
  Receipt Date: 20110525
  Transmission Date: 20111010
  Serious: Yes (Hospitalization)
  Sender: FDA-Public Use
  Company Number: PHHO2011US03989

PATIENT
  Sex: Male
  Weight: 104 kg

DRUGS (13)
  1. NOVOLOG [Concomitant]
     Dosage: 15 UNITS W/MEALS
  2. MEDROL [Concomitant]
     Dosage: 28 MG, QD
  3. VALCYTE [Concomitant]
     Dosage: 450 MG, QD
  4. ALLOPURINOL [Concomitant]
     Indication: PROPHYLAXIS
     Dosage: 100 MG, QD
     Dates: start: 20080707
  5. ZOCOR [Concomitant]
     Dosage: 10 MG, QD
  6. ASPIRIN [Concomitant]
     Dosage: 325 MG, QD
     Dates: start: 20110222
  7. COREG [Concomitant]
     Indication: CARDIAC DISORDER
     Dosage: 3.125 MG, BID
     Dates: start: 20110222
  8. HUMAN INSULIN [Concomitant]
     Indication: DIABETES MELLITUS
     Dosage: 30 UNITS MORNING AND 18 UNITS EVENING
     Dates: start: 20110222
  9. PLAVIX [Concomitant]
     Indication: CARDIAC DISORDER
     Dosage: 75 MG, QD
     Dates: start: 20080707
  10. FOLIC ACID [Concomitant]
     Dosage: 1 MG, QD
     Dates: start: 20080707
  11. CERTICAN [Suspect]
     Indication: RENAL TRANSPLANT
     Dosage: 0.75 MG, BID
     Dates: start: 20110221
  12. TACROLIMUS [Concomitant]
     Indication: RENAL TRANSPLANT
     Dosage: 0.5 MG, BID
     Dates: start: 20110221
  13. PRILOSEC [Concomitant]
     Dosage: 20 MG, QD

REACTIONS (3)
  - ACUTE CORONARY SYNDROME [None]
  - CONCOMITANT DISEASE PROGRESSION [None]
  - ACUTE MYOCARDIAL INFARCTION [None]
